FAERS Safety Report 7636943-5 (Version None)
Quarter: 2011Q3

REPORT INFORMATION
  Report Type: 
  Country: None (occurrence: None)
  Receive Date: 20110726
  Receipt Date: 20110713
  Transmission Date: 20111222
  Serious: Yes (Hospitalization)
  Sender: FDA-Public Use
  Company Number: US-US-EMD SERONO, INC.-7072689

PATIENT
  Sex: Female

DRUGS (1)
  1. REBIF [Suspect]
     Route: 065

REACTIONS (2)
  - MATERNAL EXPOSURE BEFORE PREGNANCY [None]
  - PREMATURE RUPTURE OF MEMBRANES [None]
